FAERS Safety Report 23145107 (Version 2)
Quarter: 2023Q4

REPORT INFORMATION
  Report Type: Spontaneous
  Country: DE (occurrence: DE)
  Receive Date: 20231103
  Receipt Date: 20231120
  Transmission Date: 20240110
  Serious: Yes (Hospitalization, Other)
  Sender: FDA-Public Use
  Company Number: None

PATIENT
  Age: 32 Year
  Sex: Female
  Weight: 75 kg

DRUGS (3)
  1. CYTOTEC [Interacting]
     Active Substance: MISOPROSTOL
     Indication: Labour induction
     Dosage: SEVERAL APPLICATIONS
     Route: 048
     Dates: start: 20081213, end: 20081214
  2. CYTOTEC [Interacting]
     Active Substance: MISOPROSTOL
     Indication: Foetal heart rate abnormal
  3. AMOXICILLIN [Interacting]
     Active Substance: AMOXICILLIN
     Dosage: UNK
     Route: 042

REACTIONS (15)
  - Shock [Recovered/Resolved with Sequelae]
  - Traumatic delivery [Recovered/Resolved with Sequelae]
  - Uterine tachysystole [Recovered/Resolved with Sequelae]
  - Labour pain [Recovered/Resolved with Sequelae]
  - Drug interaction [Recovered/Resolved with Sequelae]
  - Nausea [Unknown]
  - Pain in extremity [Unknown]
  - Anxiety [Recovered/Resolved with Sequelae]
  - Skin irritation [Unknown]
  - Insomnia [Unknown]
  - Screaming [Unknown]
  - Pain [Unknown]
  - Decreased immune responsiveness [Unknown]
  - Irritability [Unknown]
  - Off label use [Unknown]

NARRATIVE: CASE EVENT DATE: 20081213
